FAERS Safety Report 5360304-5 (Version None)
Quarter: 2007Q2

REPORT INFORMATION
  Report Type: 
  Country: None (occurrence: None)
  Receive Date: 20070614
  Receipt Date: 20070608
  Transmission Date: 20071010
  Serious: Yes (Hospitalization)
  Sender: FDA-Public Use
  Company Number: 2007SP002175

PATIENT
  Age: 78 Year
  Sex: Female

DRUGS (12)
  1. LUNESTA [Suspect]
     Indication: INSOMNIA
     Dosage: 2 MG; 1X; ORAL
     Route: 048
     Dates: start: 20070303, end: 20070303
  2. OXYGEN [Concomitant]
  3. FLUTICASONE PROPIONATE [Concomitant]
  4. ALBUTEROL [Concomitant]
  5. VITAMIN D [Concomitant]
  6. FOSAMAX [Concomitant]
  7. VALSARTAN [Concomitant]
  8. HYDROCHLOROTHIAZIDE [Concomitant]
  9. NASAL PREPARATIONS [Concomitant]
  10. TIOTROPIUM BROMIDE [Concomitant]
  11. PANTOPRAZOLE SODIUM [Concomitant]
  12. NASAL SALINE [Concomitant]

REACTIONS (2)
  - DISORIENTATION [None]
  - MENTAL STATUS CHANGES [None]
